FAERS Safety Report 13471900 (Version 2)
Quarter: 2017Q2

REPORT INFORMATION
  Report Type: Spontaneous
  Country: US (occurrence: US)
  Receive Date: 20170424
  Receipt Date: 20170525
  Transmission Date: 20170830
  Serious: No
  Sender: FDA-Public Use
  Company Number: US-PFIZER INC-2017174930

PATIENT
  Age: 51 Year
  Sex: Male
  Weight: 117.93 kg

DRUGS (7)
  1. LIPITOR [Suspect]
     Active Substance: ATORVASTATIN CALCIUM
     Indication: HYPERLIPIDAEMIA
     Dosage: 20 MG, ONE TIME A DAY
     Route: 048
     Dates: start: 20170323
  2. ASPIRIN. [Suspect]
     Active Substance: ASPIRIN
     Dosage: 81 MG, UNK
  3. WELCHOL [Concomitant]
     Active Substance: COLESEVELAM HYDROCHLORIDE
     Indication: DIARRHOEA
     Dosage: 3.75MG, DAILY (1 PACKAGE DAILY)
  4. WELCHOL [Concomitant]
     Active Substance: COLESEVELAM HYDROCHLORIDE
     Indication: BLOOD CHOLESTEROL ABNORMAL
  5. WELCHOL [Concomitant]
     Active Substance: COLESEVELAM HYDROCHLORIDE
     Indication: HYPERLIPIDAEMIA
  6. TESTOSTERONE CYPIONATE. [Suspect]
     Active Substance: TESTOSTERONE CYPIONATE
     Indication: ANDROGEN DEFICIENCY
     Dosage: 200 MG/ML, ONCE EVERY TWO WEEKS
     Route: 030
     Dates: start: 20170323
  7. WELCHOL [Concomitant]
     Active Substance: COLESEVELAM HYDROCHLORIDE
     Indication: BLOOD CHOLESTEROL

REACTIONS (1)
  - Myalgia [Not Recovered/Not Resolved]
